FAERS Safety Report 17540294 (Version 2)
Quarter: 2020Q1

REPORT INFORMATION
  Report Type: Report from Study
  Country: US (occurrence: US)
  Receive Date: 20200313
  Receipt Date: 20200318
  Transmission Date: 20200409
  Serious: Yes (Hospitalization)
  Sender: FDA-Public Use
  Company Number: US-VERTEX PHARMACEUTICALS-2020-004502

PATIENT
  Sex: Male
  Weight: 73.92 kg

DRUGS (4)
  1. TOBRAMYCIN. [Concomitant]
     Active Substance: TOBRAMYCIN
     Dosage: 1.2 GM VIAL
  2. PULMOZYME [Concomitant]
     Active Substance: DORNASE ALFA
  3. KALYDECO [Suspect]
     Active Substance: IVACAFTOR
     Indication: CYSTIC FIBROSIS
     Dosage: 150 MG, BID (REGULAR)
     Route: 048
     Dates: start: 20120701
  4. MEROPENEM. [Concomitant]
     Active Substance: MEROPENEM
     Dosage: 1 GM VIAL
     Route: 042

REACTIONS (3)
  - Pneumothorax [Not Recovered/Not Resolved]
  - Cystic fibrosis respiratory infection suppression [Unknown]
  - Oxygen saturation decreased [Not Recovered/Not Resolved]
